FAERS Safety Report 7800409-X (Version None)
Quarter: 2011Q4

REPORT INFORMATION
  Report Type: 
  Country: None (occurrence: None)
  Receive Date: 20111006
  Receipt Date: 20110928
  Transmission Date: 20120403
  Serious: Yes (Hospitalization)
  Sender: FDA-Public Use
  Company Number: US-JNJFOC-20110808195

PATIENT
  Sex: Male
  Weight: 135.17 kg

DRUGS (1)
  1. STELARA [Suspect]
     Indication: PSORIASIS
     Route: 058
     Dates: start: 20110525, end: 20110525

REACTIONS (3)
  - ENCEPHALOPATHY [None]
  - HYPERTENSION [None]
  - DEHYDRATION [None]
